FAERS Safety Report 7622652-5 (Version None)
Quarter: 2011Q3

REPORT INFORMATION
  Report Type: 
  Country: None (occurrence: None)
  Receive Date: 20110719
  Receipt Date: 20110719
  Transmission Date: 20111222
  Serious: Yes (Life-Threatening, Hospitalization, Other)
  Sender: FDA-Public Use
  Company Number: None

PATIENT
  Age: 25 Year
  Sex: Male
  Weight: 72.5755 kg

DRUGS (2)
  1. CORICIDIN HBP COUGH AND COLD [Suspect]
     Indication: PARTNER STRESS
     Dates: start: 20061101, end: 20061201
  2. CORICIDIN HBP COUGH AND COLD [Suspect]
     Indication: PARTNER STRESS
     Dates: start: 20090101, end: 20091201

REACTIONS (9)
  - PARTNER STRESS [None]
  - APPARENT DEATH [None]
  - COMA [None]
  - DRUG ABUSE [None]
  - OVERDOSE [None]
  - MANIA [None]
  - INSOMNIA [None]
  - ABNORMAL BEHAVIOUR [None]
  - DELUSION [None]
